FAERS Safety Report 15473748 (Version 1)
Quarter: 2018Q4

REPORT INFORMATION
  Report Type: Spontaneous
  Country: GB (occurrence: GB)
  Receive Date: 20181008
  Receipt Date: 20181008
  Transmission Date: 20190205
  Serious: Yes (Other)
  Sender: FDA-Public Use
  Company Number: GB-PFIZER INC-2018394254

PATIENT
  Age: 49 Year
  Sex: Male
  Weight: 94 kg

DRUGS (8)
  1. PROCARBAZINE [Suspect]
     Active Substance: PROCARBAZINE
     Indication: BRAIN NEOPLASM
     Dosage: 200 MG, UNK
     Route: 048
     Dates: start: 20160426, end: 20160506
  2. TEMOZOLOMIDE. [Suspect]
     Active Substance: TEMOZOLOMIDE
     Indication: BRAIN NEOPLASM
     Dosage: UNK (150-200MG 24 HOURLY)
     Route: 048
     Dates: start: 20151201, end: 20160412
  3. METOCLOPRAMIDE. [Concomitant]
     Active Substance: METOCLOPRAMIDE
     Dosage: UNK
  4. LOMUSTINE. [Suspect]
     Active Substance: LOMUSTINE
     Indication: BRAIN NEOPLASM
     Dosage: 200 MG, 1X/DAY (EVERY 24 HOURS)
     Route: 048
     Dates: start: 20160426, end: 20160427
  5. CITALOPRAM [Concomitant]
     Active Substance: CITALOPRAM HYDROBROMIDE
     Dosage: UNK
  6. VINCRISTINE SULFATE. [Suspect]
     Active Substance: VINCRISTINE SULFATE
     Indication: BRAIN NEOPLASM
     Dosage: 2 MG, SINGLE (2MG ONCE ONLY)
     Route: 042
     Dates: start: 20160426, end: 20160426
  7. LANSOPRAZOLE. [Concomitant]
     Active Substance: LANSOPRAZOLE
     Dosage: UNK
  8. DEXAMETHASONE. [Concomitant]
     Active Substance: DEXAMETHASONE
     Dosage: UNK

REACTIONS (6)
  - Nausea [Unknown]
  - Jaundice [Unknown]
  - Drug-induced liver injury [Unknown]
  - Liver function test abnormal [Not Recovered/Not Resolved]
  - Choluria [Unknown]
  - Pruritus [Unknown]

NARRATIVE: CASE EVENT DATE: 20160527
